FAERS Safety Report 4653818-4 (Version None)
Quarter: 2005Q2

REPORT INFORMATION
  Report Type: 
  Country: None (occurrence: None)
  Receive Date: 20050504
  Receipt Date: 20050425
  Transmission Date: 20051028
  Serious: Yes (Hospitalization)
  Sender: FDA-Public Use
  Company Number: 2005US000515

PATIENT
  Age: 10 Year
  Sex: Male
  Weight: 44.4 kg

DRUGS (8)
  1. PROGRAF [Suspect]
     Indication: PROPHYLAXIS AGAINST TRANSPLANT REJECTION
     Dosage: 13.00 MG, BID
  2. ZENAPAX [Suspect]
     Indication: PROPHYLAXIS AGAINST TRANSPLANT REJECTION
  3. IMURAN [Concomitant]
  4. ASPIRIN [Concomitant]
  5. GANCICLOVIR SODIUM [Concomitant]
  6. EPOGEN [Concomitant]
  7. SODIUM BICARBONATE (SODIUM BICARBONATE) TABLET [Concomitant]
  8. IRON (IRON) [Concomitant]

REACTIONS (2)
  - KIDNEY TRANSPLANT REJECTION [None]
  - POLYOMAVIRUS INTERSTITIAL NEPHRITIS [None]
